FAERS Safety Report 9431963 (Version 1)
Quarter: 2013Q3

REPORT INFORMATION
  Report Type: Spontaneous
  Country: US (occurrence: US)
  Receive Date: 20130731
  Receipt Date: 20130731
  Transmission Date: 20140515
  Serious: Yes (Other)
  Sender: FDA-Public Use
  Company Number: US-BRISTOL-MYERS SQUIBB COMPANY-19088988

PATIENT
  Age: 76 Year
  Sex: Male
  Weight: 119.72 kg

DRUGS (9)
  1. ELIQUIS [Suspect]
     Indication: ATRIAL FLUTTER
     Route: 048
     Dates: start: 20130605, end: 20130702
  2. LISINOPRIL [Concomitant]
  3. SIMVASTATIN [Concomitant]
  4. ASPIRIN [Concomitant]
  5. CARVEDILOL [Concomitant]
  6. FLOMAX [Concomitant]
  7. FUROSEMIDE [Concomitant]
  8. TAMSULOSIN [Concomitant]
  9. POTASSIUM CHLORIDE [Concomitant]

REACTIONS (1)
  - Antiphospholipid antibodies positive [Recovering/Resolving]
